FAERS Safety Report 23322020 (Version 2)
Quarter: 2023Q4

REPORT INFORMATION
  Report Type: Spontaneous
  Country: CN (occurrence: None)
  Receive Date: 20231220
  Receipt Date: 20231225
  Transmission Date: 20240110
  Serious: Yes (Life-Threatening, Other)
  Sender: FDA-Public Use
  Company Number: 2023A287830

PATIENT
  Sex: Female

DRUGS (1)
  1. IRESSA [Suspect]
     Active Substance: GEFITINIB
     Dosage: UNKNOWN
     Route: 048
     Dates: end: 202111

REACTIONS (3)
  - Depressed level of consciousness [Unknown]
  - Metastases to central nervous system [Unknown]
  - Cerebral infarction [Unknown]
